FAERS Safety Report 8198432-1 (Version None)
Quarter: 2012Q1

REPORT INFORMATION
  Report Type: 
  Country: None (occurrence: None)
  Receive Date: 20120309
  Receipt Date: 20110707
  Transmission Date: 20120608
  Serious: Yes (Hospitalization, Other)
  Sender: FDA-Public Use
  Company Number: PHHY2011FR61529

PATIENT
  Age: 8 Year
  Sex: Male

DRUGS (5)
  1. MIDAZOLAM [Suspect]
     Indication: COMPLEX PARTIAL SEIZURES
  2. VALPROATE SODIUM [Suspect]
  3. CARBAMAZEPINE [Suspect]
     Indication: COMPLEX PARTIAL SEIZURES
  4. LEVETIRACETAM [Suspect]
     Indication: COMPLEX PARTIAL SEIZURES
  5. TOPIRAMATE [Suspect]

REACTIONS (5)
  - COMA [None]
  - CSF LYMPHOCYTE COUNT ABNORMAL [None]
  - ENCEPHALITIS [None]
  - DRUG INEFFECTIVE [None]
  - TOXICITY TO VARIOUS AGENTS [None]
